FAERS Safety Report 19080482 (Version 1)
Quarter: 2021Q1

REPORT INFORMATION
  Report Type: Spontaneous
  Country: FR (occurrence: FR)
  Receive Date: 20210331
  Receipt Date: 20210331
  Transmission Date: 20210420
  Serious: Yes (Other)
  Sender: FDA-Public Use
  Company Number: NVSC2021FR068357

PATIENT
  Sex: Male

DRUGS (3)
  1. CARBOPLATIN. [Suspect]
     Active Substance: CARBOPLATIN
     Indication: PRODUCT USED FOR UNKNOWN INDICATION
     Dosage: UNK (INDUCTION CYCLE)
     Route: 065
  2. PEMETREXED DISODIUM [Suspect]
     Active Substance: PEMETREXED DISODIUM
     Indication: PRODUCT USED FOR UNKNOWN INDICATION
     Dosage: UNK (INDUCTION CYCLE)
     Route: 065
  3. KEYTRUDA [Suspect]
     Active Substance: PEMBROLIZUMAB
     Indication: PRODUCT USED FOR UNKNOWN INDICATION
     Dosage: UNK (INDUCTION CYCLE)
     Route: 065

REACTIONS (2)
  - Cardiotoxicity [Unknown]
  - Renal failure [Unknown]
